FAERS Safety Report 8197866-9 (Version None)
Quarter: 2012Q1

REPORT INFORMATION
  Report Type: 
  Country: None (occurrence: None)
  Receive Date: 20120309
  Receipt Date: 20120305
  Transmission Date: 20120608
  Serious: Yes (Other)
  Sender: FDA-Public Use
  Company Number: US-JNJFOC-20100806122

PATIENT
  Sex: Female

DRUGS (3)
  1. LEVAQUIN [Suspect]
     Indication: URINARY TRACT INFECTION
     Route: 048
     Dates: start: 20070101, end: 20070101
  2. PRED FORTE [Suspect]
     Indication: EYE DISORDER
     Route: 047
  3. CIPROFLOXACIN [Suspect]
     Indication: CYSTITIS
     Route: 065

REACTIONS (4)
  - ROTATOR CUFF SYNDROME [None]
  - PAIN [None]
  - MUSCLE DISORDER [None]
  - TENDON RUPTURE [None]
